FAERS Safety Report 4953699-5 (Version None)
Quarter: 2006Q1

REPORT INFORMATION
  Report Type: 
  Country: None (occurrence: None)
  Receive Date: 20060324
  Receipt Date: 20060318
  Transmission Date: 20060701
  Serious: Yes (Death)
  Sender: FDA-Public Use
  Company Number: JP-BOEHRINGER INGELHEIM PHARMACEUTICALS, INC.-2006-BP-03080NB

PATIENT
  Age: 75 Year
  Sex: Male

DRUGS (5)
  1. SPIRIVA [Suspect]
     Indication: CHRONIC OBSTRUCTIVE PULMONARY DISEASE
     Route: 055
     Dates: start: 20060303, end: 20060317
  2. CELESTAMINE (BETAMETHASONE/D-CHLORPHENIRAMINE MALEATE) [Concomitant]
     Indication: SEBORRHOEIC DERMATITIS
     Route: 048
     Dates: start: 20040101
  3. HIBON [Concomitant]
     Indication: STOMATITIS
     Route: 048
     Dates: start: 20040101
  4. ALESION [Concomitant]
     Indication: SEBORRHOEIC DERMATITIS
     Route: 048
     Dates: start: 20040101
  5. HOKUNALINE:TAPE (TULOBUTEROL) [Concomitant]
     Indication: EMPHYSEMA
     Route: 062
     Dates: start: 20040101

REACTIONS (1)
  - RESPIRATORY FAILURE [None]
